FAERS Safety Report 23053342 (Version 1)
Quarter: 2023Q4

REPORT INFORMATION
  Report Type: Report from Study
  Country: CA (occurrence: CA)
  Receive Date: 20231011
  Receipt Date: 20231011
  Transmission Date: 20240110
  Serious: Yes (Other)
  Sender: FDA-Public Use
  Company Number: CA-JNJFOC-20230961502

PATIENT
  Age: 18 Year
  Sex: Male
  Weight: 100 kg

DRUGS (1)
  1. REMICADE [Suspect]
     Active Substance: INFLIXIMAB
     Indication: Crohn^s disease
     Dosage: DOSE ALSO REPORTED AS 10 MG/KG
     Route: 042

REACTIONS (2)
  - Circumcision [Unknown]
  - COVID-19 [Unknown]

NARRATIVE: CASE EVENT DATE: 20230925
